FAERS Safety Report 9352831 (Version 1)
Quarter: 2013Q2

REPORT INFORMATION
  Report Type: Spontaneous
  Country: US (occurrence: None)
  Receive Date: 20130614
  Receipt Date: 20130614
  Transmission Date: 20140414
  Serious: Yes (Other)
  Sender: FDA-Public Use
  Company Number: None

PATIENT
  Age: 64 Year
  Sex: Female
  Weight: 71.6 kg

DRUGS (1)
  1. PACLITAXEL [Suspect]
     Indication: OVARIAN CANCER
     Dosage: 315 MG EVERY 21 DAYS IV
     Route: 042
     Dates: start: 20130604, end: 20130604

REACTIONS (4)
  - Flushing [None]
  - Dizziness [None]
  - Hypotension [None]
  - Infusion related reaction [None]
